FAERS Safety Report 11112523 (Version 1)
Quarter: 2015Q2

REPORT INFORMATION
  Report Type: Spontaneous
  Country: US (occurrence: US)
  Receive Date: 20150514
  Receipt Date: 20150514
  Transmission Date: 20150821
  Serious: Yes (Other)
  Sender: FDA-Public Use
  Company Number: US-MYLANLABS-2015M1014912

PATIENT

DRUGS (2)
  1. FENTANYL. [Suspect]
     Active Substance: FENTANYL
     Indication: PAIN
     Dosage: 100 ?G, QH, CHANGE Q72H
     Route: 062
  2. FENTANYL. [Suspect]
     Active Substance: FENTANYL
     Indication: PAIN
     Dosage: 50 ?G, QH, CHANGE Q72H
     Route: 062

REACTIONS (3)
  - Organising pneumonia [Recovered/Resolved]
  - Adrenocortical insufficiency acute [Recovered/Resolved]
  - Pain [Recovered/Resolved]
